FAERS Safety Report 24657454 (Version 2)
Quarter: 2024Q4

REPORT INFORMATION
  Report Type: Spontaneous
  Country: CA (occurrence: CA)
  Receive Date: 20241125
  Receipt Date: 20241211
  Transmission Date: 20250114
  Serious: Yes (Hospitalization, Other)
  Sender: TAKEDA
  Company Number: CA-TAKEDA-2024TUS105530

PATIENT
  Sex: Female
  Weight: 70 kg

DRUGS (7)
  1. LIVTENCITY [Suspect]
     Active Substance: MARIBAVIR
     Indication: Cytomegalovirus infection
     Dosage: 400 MILLIGRAM, QD
  2. LIVTENCITY [Suspect]
     Active Substance: MARIBAVIR
     Dosage: UNK
  3. LIVTENCITY [Suspect]
     Active Substance: MARIBAVIR
     Dosage: UNK UNK, BID
     Dates: start: 20230821, end: 20231220
  4. LIVTENCITY [Suspect]
     Active Substance: MARIBAVIR
     Dosage: 400 MILLIGRAM, QD
     Dates: start: 202308
  5. LIVTENCITY [Suspect]
     Active Substance: MARIBAVIR
     Dosage: 400 MILLIGRAM, QD
  6. FOSCARNET [Concomitant]
     Active Substance: FOSCARNET
     Dosage: UNK
  7. LETERMOVIR [Concomitant]
     Active Substance: LETERMOVIR
     Indication: Prophylaxis
     Dosage: UNK

REACTIONS (5)
  - Cytomegalovirus infection [Recovering/Resolving]
  - Urosepsis [Recovered/Resolved]
  - Treatment noncompliance [Unknown]
  - Drug resistance [Recovered/Resolved]
  - Incorrect dose administered [Unknown]
